FAERS Safety Report 9100529 (Version 2)
Quarter: 2013Q1

REPORT INFORMATION
  Report Type: Report from Study
  Country: US (occurrence: US)
  Receive Date: 20130215
  Receipt Date: 20130225
  Transmission Date: 20140127
  Serious: Yes (Hospitalization)
  Sender: FDA-Public Use
  Company Number: US-JNJFOC-20130206923

PATIENT
  Age: 19 Year
  Sex: Female
  Weight: 56.2 kg

DRUGS (4)
  1. REMICADE [Suspect]
     Indication: CROHN^S DISEASE
     Route: 042
     Dates: start: 20080515
  2. REMICADE [Suspect]
     Indication: CROHN^S DISEASE
     Dosage: STOPPED PRIOR TO STUDY ENROLLMENT
     Route: 042
     Dates: start: 20060517
  3. HUMIRA [Concomitant]
     Dates: start: 20070921
  4. HUMIRA [Concomitant]
     Dates: start: 20010921

REACTIONS (1)
  - Crohn^s disease [Recovered/Resolved]
